FAERS Safety Report 6720196-6 (Version None)
Quarter: 2010Q2

REPORT INFORMATION
  Report Type: 
  Country: None (occurrence: None)
  Receive Date: 20100511
  Receipt Date: 20100503
  Transmission Date: 20101027
  Serious: Yes (Hospitalization, Other)
  Sender: FDA-Public Use
  Company Number: NZ-ELI_LILLY_AND_COMPANY-NZ201005001398

PATIENT
  Age: 55 Year
  Sex: Female

DRUGS (5)
  1. GEMZAR [Suspect]
     Indication: PANCREATIC CARCINOMA METASTATIC
     Dosage: 1200 MG, OTHER
     Route: 042
  2. MORPHINE SULFATE [Concomitant]
     Dosage: 10 MG, 2/D
     Route: 048
  3. OMEPRAZOLE [Concomitant]
     Dosage: 20 MG, DAILY (1/D)
     Route: 048
  4. DOMPERIDONE [Concomitant]
     Dosage: 20 MG, Q.I.D/P.R.N
     Route: 048
  5. COLOXYL WITH SENNA [Concomitant]
     Dosage: 2 TABLETS, DAILY (1/D)
     Route: 048

REACTIONS (1)
  - REVERSIBLE POSTERIOR LEUKOENCEPHALOPATHY SYNDROME [None]
